FAERS Safety Report 5926537-1 (Version None)
Quarter: 2008Q4

REPORT INFORMATION
  Report Type: 
  Country: None (occurrence: None)
  Receive Date: 20081022
  Receipt Date: 20081013
  Transmission Date: 20090506
  Serious: Yes (Other)
  Sender: FDA-Public Use
  Company Number: US-KINGPHARMUSA00001-K200801196

PATIENT

DRUGS (4)
  1. LEVOXYL [Suspect]
     Indication: HYPOTHYROIDISM
     Dosage: 137 MCG, QD
     Route: 048
     Dates: start: 20030101, end: 20081001
  2. LEVOXYL [Suspect]
     Dosage: 75 MCG, QD
     Route: 048
     Dates: start: 20081001, end: 20081013
  3. ESTERACE [Concomitant]
     Indication: HYSTERECTOMY
     Dosage: .05 MG, QD
     Route: 048
     Dates: start: 20020101
  4. ALTACE [Concomitant]
     Indication: LOSS OF CONSCIOUSNESS
     Dates: start: 20050101

REACTIONS (4)
  - DRUG DISPENSING ERROR [None]
  - FEELING ABNORMAL [None]
  - LOSS OF CONSCIOUSNESS [None]
  - SYNCOPE [None]
